FAERS Safety Report 14754489 (Version 1)
Quarter: 2018Q2

REPORT INFORMATION
  Report Type: Report from Study
  Country: None (occurrence: US)
  Receive Date: 20180412
  Receipt Date: 20180412
  Transmission Date: 20180711
  Serious: Yes (Hospitalization, Other)
  Sender: FDA-Public Use
  Company Number: US-ABBVIE-18P-163-2316677-00

PATIENT
  Age: 57 Year
  Sex: Female

DRUGS (5)
  1. VEGAN OMEGA 3 SUBSTITUTE [Concomitant]
     Indication: PRODUCT USED FOR UNKNOWN INDICATION
  2. MULTIVITAMIN [Concomitant]
     Active Substance: VITAMINS
     Indication: PRODUCT USED FOR UNKNOWN INDICATION
  3. VITAMIN D [Concomitant]
     Active Substance: CHOLECALCIFEROL
     Indication: PRODUCT USED FOR UNKNOWN INDICATION
  4. SYNTHROID [Suspect]
     Active Substance: LEVOTHYROXINE SODIUM
     Dosage: ONE TABLET EVERY OTHER DAY ALTERNATING WITH SYNTHROID 75MCG
     Route: 048
     Dates: start: 2007
  5. SYNTHROID [Suspect]
     Active Substance: LEVOTHYROXINE SODIUM
     Indication: HYPOTHYROIDISM
     Dosage: ALTERNATING EVERY OTHER DAY WITH 100MCG  SYNTHROID
     Route: 048
     Dates: start: 2007

REACTIONS (13)
  - Amnesia [Not Recovered/Not Resolved]
  - Road traffic accident [Not Recovered/Not Resolved]
  - Dysstasia [Recovering/Resolving]
  - Neck pain [Unknown]
  - Road traffic accident [Recovered/Resolved]
  - Neck injury [Recovering/Resolving]
  - Road traffic accident [Not Recovered/Not Resolved]
  - Back injury [Recovering/Resolving]
  - Amnesia [Not Recovered/Not Resolved]
  - Head injury [Recovering/Resolving]
  - Head injury [Recovering/Resolving]
  - Muscle spasms [Recovering/Resolving]
  - Back pain [Unknown]

NARRATIVE: CASE EVENT DATE: 20170329
